FAERS Safety Report 18343472 (Version 1)
Quarter: 2020Q4

REPORT INFORMATION
  Report Type: Spontaneous
  Country: DE (occurrence: DE)
  Receive Date: 20201005
  Receipt Date: 20201005
  Transmission Date: 20210113
  Serious: Yes (Hospitalization)
  Sender: FDA-Public Use
  Company Number: DE-DRREDDYS-GER/GER/20/0127491

PATIENT
  Age: 17 Year
  Sex: Female
  Weight: 92 kg

DRUGS (5)
  1. FLUOXETINE [Suspect]
     Active Substance: FLUOXETINE HYDROCHLORIDE
     Indication: SUICIDAL IDEATION
     Route: 048
     Dates: start: 20200607, end: 20200607
  2. FLUOXETINE [Suspect]
     Active Substance: FLUOXETINE HYDROCHLORIDE
     Indication: MAJOR DEPRESSION
     Dosage: 30-0-0 MG
     Route: 048
  3. QUETIAPINE. [Suspect]
     Active Substance: QUETIAPINE
     Indication: SUICIDAL IDEATION
     Dosage: DAILY DOSE: 250 MG MILLGRAM(S) EVERY DAYS 10 SEPARATED DOSES
     Route: 048
     Dates: start: 20200607, end: 20200607
  4. IBUPROFEN. [Suspect]
     Active Substance: IBUPROFEN
     Indication: SUICIDAL IDEATION
     Dosage: DAILY DOSE: 2800 MG MILLGRAM(S) EVERY DAYS 7 SEPARATED DOSES
     Dates: start: 20200607, end: 20200607
  5. QUETIAPINE. [Concomitant]
     Active Substance: QUETIAPINE
     Indication: MAJOR DEPRESSION
     Route: 048

REACTIONS (4)
  - Intentional overdose [Unknown]
  - Fatigue [Unknown]
  - General physical health deterioration [Unknown]
  - Toxicity to various agents [Unknown]

NARRATIVE: CASE EVENT DATE: 20200607
